FAERS Safety Report 12118804 (Version 1)
Quarter: 2016Q1

REPORT INFORMATION
  Report Type: Not Available
  Country: FR (occurrence: FR)
  Receive Date: 20160226
  Receipt Date: 20160226
  Transmission Date: 20160526
  Serious: Yes (Other)
  Sender: FDA-Public Use
  Company Number: FR-BEH-2016059301

PATIENT
  Age: 42 Year
  Sex: Male

DRUGS (2)
  1. PRIVIGEN [Suspect]
     Active Substance: HUMAN IMMUNOGLOBULIN G
     Indication: NERVE CONDUCTION STUDIES ABNORMAL
     Dosage: START DATE: ??-??-2011, ADMINISTRATION FREQUENCY: MONTHLY
     Route: 042
  2. PRIVIGEN [Suspect]
     Active Substance: HUMAN IMMUNOGLOBULIN G
     Indication: MULTIFOCAL MOTOR NEUROPATHY
     Dosage: START DATE: ??-??-2011, ADMINISTRATION FREQUENCY: MONTHLY
     Route: 042

REACTIONS (6)
  - Rash [Recovering/Resolving]
  - Exfoliative rash [Recovering/Resolving]
  - Lip exfoliation [Recovering/Resolving]
  - Cutaneous lupus erythematosus [Recovering/Resolving]
  - Oral mucosal exfoliation [Recovering/Resolving]
  - Rash erythematous [Recovering/Resolving]

NARRATIVE: CASE EVENT DATE: 201407
